FAERS Safety Report 9355804 (Version 1)
Quarter: 2013Q2

REPORT INFORMATION
  Report Type: Spontaneous
  Country: US (occurrence: US)
  Receive Date: 20130619
  Receipt Date: 20130619
  Transmission Date: 20140414
  Serious: Yes (Hospitalization, Other)
  Sender: FDA-Public Use
  Company Number: PHHY2013US060872

PATIENT
  Age: 32 Year
  Sex: Female

DRUGS (4)
  1. GABAPENTIN [Suspect]
  2. METHADONE [Suspect]
  3. SERTRALINE [Suspect]
  4. TRAMADOL [Suspect]

REACTIONS (8)
  - Serotonin syndrome [Unknown]
  - Myoclonus [Unknown]
  - Tachycardia [Unknown]
  - Fall [Unknown]
  - Joint injury [Unknown]
  - Convulsion [Unknown]
  - Blood creatinine increased [Unknown]
  - Drug abuse [Unknown]
